FAERS Safety Report 5162182-6 (Version None)
Quarter: 2006Q4

REPORT INFORMATION
  Report Type: 
  Country: None (occurrence: None)
  Receive Date: 20061121
  Receipt Date: 20061114
  Transmission Date: 20070319
  Serious: Yes (Hospitalization)
  Sender: FDA-Public Use
  Company Number: THYR-10350

PATIENT
  Age: 20 Year
  Sex: Female

DRUGS (1)
  1. THYROGEN [Suspect]
     Indication: THYROID CANCER
     Dosage: 0.9 MG ONCE IM
     Route: 030
     Dates: start: 20060918, end: 20060919

REACTIONS (6)
  - ANXIETY [None]
  - DIZZINESS [None]
  - FEAR [None]
  - HYPERVENTILATION [None]
  - NAUSEA [None]
  - PALPITATIONS [None]
